FAERS Safety Report 6237926-2 (Version None)
Quarter: 2009Q2

REPORT INFORMATION
  Report Type: 
  Country: None (occurrence: None)
  Receive Date: 20090621
  Receipt Date: 20090608
  Transmission Date: 20091009
  Serious: Yes (Hospitalization, Other)
  Sender: FDA-Public Use
  Company Number: PHHY2009IR21943

PATIENT
  Age: 51 Year
  Sex: Male

DRUGS (10)
  1. CYCLOSPORINE [Suspect]
     Indication: RENAL TRANSPLANT
     Dosage: 250 MG/DAY
     Dates: start: 20040101
  2. CYCLOSPORINE [Suspect]
     Dosage: 100 MG/DAY
  3. CYCLOSPORINE [Suspect]
     Dosage: 100 MG/DAY
  4. CYCLOSPORINE [Suspect]
     Dosage: 125 MG/DAY
  5. MYCOPHENOLATE MOFETIL [Suspect]
     Indication: RENAL TRANSPLANT
     Dosage: 2 G/DAY
     Dates: start: 20040101
  6. MYCOPHENOLATE MOFETIL [Suspect]
     Dosage: 1 G/DAY
  7. PREDNISOLONE [Suspect]
     Indication: RENAL TRANSPLANT
     Dosage: 5 MG/DAY
     Dates: start: 20040101
  8. PREDNISOLONE [Suspect]
     Dosage: 20 MG/DAY
  9. PREDNISOLONE [Suspect]
     Dosage: 5 MG/DAY
  10. AZATHIOPRINE [Concomitant]
     Indication: IMMUNOSUPPRESSION
     Dosage: 50 MG/DAY

REACTIONS (21)
  - ASTHENIA [None]
  - CYTOMEGALOVIRUS INFECTION [None]
  - DEBRIDEMENT [None]
  - DRUG LEVEL INCREASED [None]
  - ETHMOID SINUS SURGERY [None]
  - EYE PAIN [None]
  - FACE OEDEMA [None]
  - FACIAL PAIN [None]
  - GLUCOSE TOLERANCE IMPAIRED [None]
  - HEADACHE [None]
  - HYPERGLYCAEMIA [None]
  - KLEBSIELLA INFECTION [None]
  - LUNG ABSCESS [None]
  - MUCORMYCOSIS [None]
  - NEPHROPATHY TOXIC [None]
  - PLEURAL EFFUSION [None]
  - PLEURITIC PAIN [None]
  - PYOTHORAX [None]
  - PYREXIA [None]
  - RHINORRHOEA [None]
  - SINUSITIS [None]
